FAERS Safety Report 16106150 (Version 5)
Quarter: 2019Q2

REPORT INFORMATION
  Report Type: Spontaneous
  Country: JP (occurrence: JP)
  Receive Date: 20190322
  Receipt Date: 20190531
  Transmission Date: 20190711
  Serious: Yes (Death, Hospitalization, Other)
  Sender: FDA-Public Use
  Company Number: JP-ASTRAZENECA-2019SE45079

PATIENT
  Age: 73 Year
  Sex: Male
  Weight: 62 kg

DRUGS (5)
  1. NIFEDIPINE CR [Suspect]
     Active Substance: NIFEDIPINE
     Indication: HYPERTENSION
     Route: 048
  2. MEROPENEM. [Suspect]
     Active Substance: MEROPENEM
     Route: 041
     Dates: start: 20190312, end: 20190323
  3. IMFINZI [Suspect]
     Active Substance: DURVALUMAB
     Indication: NON-SMALL CELL LUNG CANCER
     Route: 041
     Dates: start: 20181218, end: 20190108
  4. CEFTRIAXONE SODIUM. [Suspect]
     Active Substance: CEFTRIAXONE SODIUM
     Route: 065
     Dates: start: 20190307, end: 20190311
  5. GENINAX [Suspect]
     Active Substance: GARENOXACIN MESYLATE
     Route: 065
     Dates: start: 20190311, end: 20190314

REACTIONS (10)
  - Interstitial lung disease [Fatal]
  - Radiation pneumonitis [Unknown]
  - Pulmonary embolism [Unknown]
  - Thrombosis [Unknown]
  - Respiratory failure [Fatal]
  - Decreased ventricular afterload [Unknown]
  - Myocarditis [Recovering/Resolving]
  - Venous thrombosis limb [Unknown]
  - Pneumonia bacterial [Unknown]
  - Myocardial necrosis marker increased [Recovering/Resolving]

NARRATIVE: CASE EVENT DATE: 20190122
